FAERS Safety Report 6815853-7 (Version None)
Quarter: 2010Q3

REPORT INFORMATION
  Report Type: 
  Country: None (occurrence: None)
  Receive Date: 20100705
  Receipt Date: 20100625
  Transmission Date: 20110219
  Serious: Yes (Hospitalization)
  Sender: FDA-Public Use
  Company Number: US-BIOGENIDEC-2010BI021920

PATIENT
  Sex: Male
  Weight: 1 kg

DRUGS (1)
  1. AVONEX [Suspect]
     Indication: DRUG EXPOSURE DURING PREGNANCY
     Route: 064
     Dates: start: 20020901, end: 20030930

REACTIONS (3)
  - MULTIPLE ALLERGIES [None]
  - NASOPHARYNGITIS [None]
  - SMALL FOR DATES BABY [None]
